FAERS Safety Report 4887877-0 (Version None)
Quarter: 2006Q1

REPORT INFORMATION
  Report Type: 
  Country: None (occurrence: None)
  Receive Date: 20060123
  Receipt Date: 20050218
  Transmission Date: 20060701
  Serious: Yes (Hospitalization, Disabling, Other)
  Sender: FDA-Public Use
  Company Number: US-MERCK-0502USA02938

PATIENT
  Age: 54 Year
  Sex: Male
  Weight: 84 kg

DRUGS (14)
  1. VIOXX [Suspect]
     Indication: ARTHRITIS
     Route: 048
     Dates: start: 20011121, end: 20040826
  2. VIOXX [Suspect]
     Route: 048
     Dates: start: 19990101
  3. MIRAPEX [Concomitant]
     Route: 065
  4. DETROL LA [Concomitant]
     Route: 065
  5. [THERAPY UNSPECIFIED] [Concomitant]
     Route: 065
  6. ZOCOR [Concomitant]
     Route: 065
  7. ALTACE [Concomitant]
     Route: 065
  8. ENBREL [Concomitant]
     Route: 065
  9. DOXAZOSIN MESYLATE [Concomitant]
     Route: 065
  10. CELEXA [Concomitant]
     Route: 065
  11. IMITREX [Concomitant]
     Route: 065
  12. HYDRODIURIL [Concomitant]
     Route: 065
  13. AVELOX [Concomitant]
     Route: 065
  14. [THERAPY UNSPECIFIED] [Concomitant]
     Route: 065

REACTIONS (6)
  - ARTHROPATHY [None]
  - CEREBROVASCULAR ACCIDENT [None]
  - HYPERTENSION [None]
  - HYPOAESTHESIA [None]
  - PULMONARY FIBROSIS [None]
  - TRANSIENT ISCHAEMIC ATTACK [None]
